FAERS Safety Report 23065649 (Version 3)
Quarter: 2023Q4

REPORT INFORMATION
  Report Type: Spontaneous
  Country: CA (occurrence: CA)
  Receive Date: 20231014
  Receipt Date: 20231226
  Transmission Date: 20240110
  Serious: Yes (Death, Hospitalization)
  Sender: FDA-Public Use
  Company Number: CA-CELLTRION INC.-2023CA019876

PATIENT

DRUGS (3)
  1. INFLECTRA [Suspect]
     Active Substance: INFLIXIMAB-DYYB
     Indication: Crohn^s disease
     Dosage: 5 MG/KG, WEEKS 0,2,6 THEN Q 8 WEEKS
     Route: 042
     Dates: start: 20230112
  2. INFLECTRA [Suspect]
     Active Substance: INFLIXIMAB-DYYB
     Dosage: 5 MG/KG, WEEKS 0,2,6 THEN Q 8 WEEKS
     Route: 042
     Dates: start: 20230127
  3. INFLECTRA [Suspect]
     Active Substance: INFLIXIMAB-DYYB
     Dosage: 5 MG/KG, WEEKS 0,2,6 THEN Q 8 WEEKS
     Route: 042
     Dates: start: 20230809

REACTIONS (3)
  - Death [Fatal]
  - Appendicitis [Not Recovered/Not Resolved]
  - Intestinal resection [Not Recovered/Not Resolved]

NARRATIVE: CASE EVENT DATE: 20230101
